FAERS Safety Report 6842341-4 (Version None)
Quarter: 2010Q3

REPORT INFORMATION
  Report Type: 
  Country: None (occurrence: None)
  Receive Date: 20100714
  Receipt Date: 20070725
  Transmission Date: 20110219
  Serious: No
  Sender: FDA-Public Use
  Company Number: US-PFIZER INC-2007063349

PATIENT
  Sex: Male
  Weight: 77.3 kg

DRUGS (1)
  1. CHANTIX [Suspect]
     Indication: SMOKING CESSATION THERAPY
     Route: 048
     Dates: start: 20070601

REACTIONS (2)
  - FEELING OF RELAXATION [None]
  - THERAPEUTIC RESPONSE UNEXPECTED [None]
